FAERS Safety Report 25538201 (Version 1)
Quarter: 2025Q3

REPORT INFORMATION
  Report Type: Report from Study
  Country: US (occurrence: US)
  Receive Date: 20250710
  Receipt Date: 20250710
  Transmission Date: 20251021
  Serious: Yes (Other)
  Sender: RANBAXY
  Company Number: US-SUN PHARMACEUTICAL INDUSTRIES INC-2025R1-515717

PATIENT
  Age: 26 Year
  Sex: Male

DRUGS (3)
  1. BACLOFEN [Suspect]
     Active Substance: BACLOFEN
     Indication: Tremor
     Route: 065
  2. BENZODIAZEPINE [Concomitant]
     Active Substance: BENZODIAZEPINE
     Indication: Tremor
     Route: 048
  3. BENZODIAZEPINE [Concomitant]
     Active Substance: BENZODIAZEPINE
     Route: 030

REACTIONS (2)
  - Condition aggravated [Unknown]
  - Tachycardia [Recovering/Resolving]
